FAERS Safety Report 18966307 (Version 1)
Quarter: 2021Q1

REPORT INFORMATION
  Report Type: Spontaneous
  Country: US (occurrence: US)
  Receive Date: 20210303
  Receipt Date: 20210303
  Transmission Date: 20210420
  Serious: No
  Sender: FDA-Public Use
  Company Number: US-PFIZER INC-2021219100

PATIENT
  Age: 81 Year
  Sex: Male
  Weight: 104.33 kg

DRUGS (2)
  1. XALKORI [Suspect]
     Active Substance: CRIZOTINIB
     Dosage: 500 MG, DAILY (TOOK 2 CAPSULESA DAY)
     Route: 048
     Dates: start: 20170307, end: 20201227
  2. XARELTO [Concomitant]
     Active Substance: RIVAROXABAN

REACTIONS (1)
  - Neoplasm progression [Recovering/Resolving]
